FAERS Safety Report 24761387 (Version 2)
Quarter: 2025Q1

REPORT INFORMATION
  Report Type: Spontaneous
  Country: CA (occurrence: CA)
  Receive Date: 20241220
  Receipt Date: 20250214
  Transmission Date: 20250408
  Serious: Yes (Other)
  Sender: INSUD PHARMA
  Company Number: US-INSUD PHARMA-2412US09705

PATIENT

DRUGS (1)
  1. DROSPIRENONE [Suspect]
     Active Substance: DROSPIRENONE
     Indication: Product used for unknown indication
     Route: 048
     Dates: start: 202412

REACTIONS (4)
  - Uterine haemorrhage [Recovered/Resolved]
  - Pyrexia [Recovered/Resolved]
  - Dysmenorrhoea [Recovered/Resolved]
  - Abnormal menstrual clots [Recovered/Resolved]

NARRATIVE: CASE EVENT DATE: 20241201
